FAERS Safety Report 9067508 (Version 4)
Quarter: 2013Q2

REPORT INFORMATION
  Report Type: Spontaneous
  Country: BR (occurrence: BR)
  Receive Date: 20130129
  Receipt Date: 20130515
  Transmission Date: 20140414
  Serious: Yes (Hospitalization, Other)
  Sender: FDA-Public Use
  Company Number: PHHY2013BR007794

PATIENT
  Age: 79 Year
  Sex: Male
  Weight: 61 kg

DRUGS (7)
  1. FORASEQ [Suspect]
     Indication: ASTHMA
     Dosage: 2 CAPSULES OF EACH TREATMENT, DAILY
  2. DEFLAZACORT [Suspect]
     Indication: ASTHMA
     Dosage: 1 DF, QD (1 TABLET DAILY)
  3. DEFLAZACORT [Suspect]
     Indication: BRONCHITIS
  4. LIPTOR [Concomitant]
     Indication: BLOOD CHOLESTEROL
     Dosage: 0.5 DF, QHS
     Route: 048
  5. ASPIRINA PREVENT [Concomitant]
     Indication: COAGULOPATHY
     Dosage: 2 DF, QD (2 TABLETS DAILY)
     Route: 048
  6. POLARAMINE EXPECTORANTE [Concomitant]
     Dosage: UNK
  7. ASTRO [Concomitant]
     Dosage: UNK UKN, UNK

REACTIONS (15)
  - Malaise [Recovered/Resolved]
  - Presyncope [Recovered/Resolved]
  - Chest pain [Recovered/Resolved]
  - Asthenia [Recovered/Resolved]
  - Eye movement disorder [Recovered/Resolved]
  - Nausea [Recovered/Resolved]
  - Arterial occlusive disease [Recovered/Resolved]
  - Gastrooesophageal reflux disease [Not Recovered/Not Resolved]
  - Cough [Not Recovered/Not Resolved]
  - Asphyxia [Not Recovered/Not Resolved]
  - Malignant melanoma [Recovered/Resolved]
  - Metastases to liver [Not Recovered/Not Resolved]
  - Wrong technique in drug usage process [Unknown]
  - Incorrect dose administered [Unknown]
  - Drug ineffective [Unknown]
